FAERS Safety Report 7667135-1 (Version None)
Quarter: 2011Q3

REPORT INFORMATION
  Report Type: 
  Country: None (occurrence: None)
  Receive Date: 20110806
  Receipt Date: 20110304
  Transmission Date: 20111222
  Serious: No
  Sender: FDA-Public Use
  Company Number: US-ABBOTT-11P-163-0709847-00

PATIENT
  Sex: Female
  Weight: 74.91 kg

DRUGS (7)
  1. TEKTURNA [Concomitant]
     Indication: HYPERTENSION
  2. METOPROLOL TARTRATE [Concomitant]
     Indication: PRODUCT USED FOR UNKNOWN INDICATION
  3. CLONIDINE [Concomitant]
     Indication: HYPERTENSION
  4. NIASPAN [Suspect]
     Indication: BLOOD TRIGLYCERIDES INCREASED
     Dates: start: 20100101, end: 20100101
  5. NIASPAN [Suspect]
     Indication: BLOOD TRIGLYCERIDES INCREASED
     Dates: start: 20100101, end: 20110302
  6. ENALAPRIL MALEATE [Concomitant]
     Indication: PRODUCT USED FOR UNKNOWN INDICATION
  7. BENICAR [Concomitant]
     Indication: HYPERTENSION

REACTIONS (7)
  - OCULAR HYPERAEMIA [None]
  - FLUSHING [None]
  - SKIN BURNING SENSATION [None]
  - SWELLING FACE [None]
  - PRURITUS GENERALISED [None]
  - DRUG INEFFECTIVE [None]
  - GENERALISED ERYTHEMA [None]
